FAERS Safety Report 21433857 (Version 2)
Quarter: 2022Q4

REPORT INFORMATION
  Report Type: Report from Study
  Country: NL (occurrence: None)
  Receive Date: 20221010
  Receipt Date: 20221018
  Transmission Date: 20230112
  Serious: Yes (Hospitalization)
  Sender: FDA-Public Use
  Company Number: NL-ROCHE-3194118

PATIENT
  Age: 63 Year
  Sex: Male

DRUGS (6)
  1. ATEZOLIZUMAB [Suspect]
     Active Substance: ATEZOLIZUMAB
     Indication: Rectal cancer
     Dosage: THE MOST RECENT DOSE ON11/OCT/2022
     Route: 041
     Dates: start: 20220906
  2. BEVACIZUMAB [Suspect]
     Active Substance: BEVACIZUMAB
     Indication: Rectal cancer
     Dosage: 19/SEP/2022: MOST RECENT DOSE
     Route: 042
     Dates: start: 20220822
  3. FENTANYL [Concomitant]
     Active Substance: FENTANYL
     Route: 048
     Dates: start: 20220921
  4. FENTANYL [Concomitant]
     Active Substance: FENTANYL
     Dates: start: 20220921
  5. IBUPROFEN [Concomitant]
     Active Substance: IBUPROFEN
     Dates: start: 20220930
  6. ASPIRIN [Concomitant]
     Active Substance: ASPIRIN
     Dates: start: 20220930

REACTIONS (2)
  - Pain [Recovered/Resolved]
  - Haemorrhoids [Recovered/Resolved]

NARRATIVE: CASE EVENT DATE: 20220930
